FAERS Safety Report 6227031-3 (Version None)
Quarter: 2009Q2

REPORT INFORMATION
  Report Type: 
  Country: None (occurrence: None)
  Receive Date: 20090612
  Receipt Date: 20090528
  Transmission Date: 20091009
  Serious: No
  Sender: FDA-Public Use
  Company Number: US-ABBOTT-09P-163-0576002-00

PATIENT
  Sex: Male

DRUGS (8)
  1. HUMIRA [Suspect]
     Indication: RHEUMATOID ARTHRITIS
     Route: 058
     Dates: start: 20090519
  2. HYDROXYCHLOROQUINE SULFATE [Concomitant]
     Indication: RHEUMATOID ARTHRITIS
  3. SULPHALAZINE [Concomitant]
     Indication: RHEUMATOID ARTHRITIS
  4. FOLIC ACID [Concomitant]
     Indication: RHEUMATOID ARTHRITIS
  5. CALCIUM [Concomitant]
     Indication: MINERAL SUPPLEMENTATION
  6. FISH OIL [Concomitant]
     Indication: MEDICAL DIET
  7. FLAX SEED [Concomitant]
     Indication: MEDICAL DIET
  8. NIASPAN [Concomitant]
     Indication: HIGH DENSITY LIPOPROTEIN DECREASED
     Route: 048
     Dates: start: 20090201

REACTIONS (4)
  - ARTHRALGIA [None]
  - CONFUSIONAL STATE [None]
  - DIZZINESS [None]
  - NAUSEA [None]
